FAERS Safety Report 7392329-2 (Version None)
Quarter: 2011Q2

REPORT INFORMATION
  Report Type: 
  Country: None (occurrence: None)
  Receive Date: 20110404
  Receipt Date: 20110328
  Transmission Date: 20111010
  Serious: No
  Sender: FDA-Public Use
  Company Number: US-B.I. PHARMACEUTICALS,INC./RIDGEFIELD-2011-BP-09376BP

PATIENT
  Sex: Female

DRUGS (5)
  1. PRED FORTE [Suspect]
     Indication: CATARACT
     Route: 031
     Dates: start: 20110201
  2. ZYMAXID [Suspect]
     Indication: CATARACT
     Route: 031
     Dates: start: 20110201
  3. SPIRIVA [Suspect]
     Indication: EMPHYSEMA
  4. BROMDAY [Suspect]
     Indication: CATARACT
     Route: 031
     Dates: start: 20110201
  5. SPIRIVA [Suspect]
     Indication: CHRONIC OBSTRUCTIVE PULMONARY DISEASE
     Dosage: 18 MCG
     Route: 055

REACTIONS (3)
  - EMPHYSEMA [None]
  - DYSURIA [None]
  - CATARACT [None]
